FAERS Safety Report 21090834 (Version 2)
Quarter: 2022Q3

REPORT INFORMATION
  Report Type: Spontaneous
  Country: MX (occurrence: MX)
  Receive Date: 20220716
  Receipt Date: 20220726
  Transmission Date: 20221027
  Serious: Yes (Life-Threatening, Hospitalization, Other)
  Sender: FDA-Public Use
  Company Number: MX-BRISTOL-MYERS SQUIBB COMPANY-2022-073392

PATIENT
  Age: 62 Year

DRUGS (2)
  1. OPDIVO [Suspect]
     Active Substance: NIVOLUMAB
     Indication: Renal cancer
     Dosage: UNK
     Route: 042
     Dates: end: 20220629
  2. YERVOY [Suspect]
     Active Substance: IPILIMUMAB
     Indication: Renal cancer
     Dosage: UNK
     Route: 042
     Dates: end: 20220629

REACTIONS (10)
  - Respiratory distress [Recovering/Resolving]
  - Rash [Recovering/Resolving]
  - Nausea [Recovering/Resolving]
  - Hepatitis [Recovering/Resolving]
  - Eyelid ptosis [Recovering/Resolving]
  - Malaise [Recovering/Resolving]
  - Pneumonitis [Recovering/Resolving]
  - Blood creatine phosphokinase increased [Recovering/Resolving]
  - Hyperkalaemia [Recovering/Resolving]
  - Food intolerance [Recovering/Resolving]

NARRATIVE: CASE EVENT DATE: 20220708
